FAERS Safety Report 5195366-1 (Version None)
Quarter: 2006Q4

REPORT INFORMATION
  Report Type: 
  Country: None (occurrence: None)
  Receive Date: 20061229
  Receipt Date: 20061220
  Transmission Date: 20070319
  Serious: Yes (Hospitalization)
  Sender: FDA-Public Use
  Company Number: IN-PFIZER INC-2006155267

PATIENT
  Age: 20 Year
  Sex: Female

DRUGS (2)
  1. DAXID [Suspect]
     Indication: MAJOR DEPRESSION
     Route: 048
  2. DAXID [Suspect]
     Indication: ANXIETY DISORDER

REACTIONS (1)
  - INTENTIONAL OVERDOSE [None]
